FAERS Safety Report 9343088 (Version 1)
Quarter: 2013Q2

REPORT INFORMATION
  Report Type: Spontaneous
  Country: TN (occurrence: TN)
  Receive Date: 20130611
  Receipt Date: 20130611
  Transmission Date: 20140414
  Serious: Yes (Death, Hospitalization)
  Sender: FDA-Public Use
  Company Number: PHHY2013TN058470

PATIENT
  Age: 25 Year
  Sex: Female

DRUGS (1)
  1. METHOTREXATE [Suspect]
     Indication: PSORIASIS
     Dosage: 25 MG, QW3
     Route: 030

REACTIONS (20)
  - Febrile neutropenia [Fatal]
  - Septic shock [Fatal]
  - Pyrexia [Fatal]
  - Dehydration [Fatal]
  - General physical condition abnormal [Unknown]
  - Mouth ulceration [Unknown]
  - Dysphagia [Unknown]
  - Salivary hypersecretion [Unknown]
  - Tachycardia [Unknown]
  - Dysphonia [Unknown]
  - Psoriasis [Unknown]
  - Rash [Unknown]
  - Rash erythematous [Unknown]
  - Rash papulosquamous [Unknown]
  - Neutropenia [Fatal]
  - Renal failure acute [Unknown]
  - Hypernatraemia [Unknown]
  - Stomatitis [Unknown]
  - Hypotension [Unknown]
  - Pancytopenia [Unknown]
